FAERS Safety Report 16720087 (Version 1)
Quarter: 2019Q3

REPORT INFORMATION
  Report Type: Spontaneous
  Country: US (occurrence: US)
  Receive Date: 20190702
  Receipt Date: 20190702
  Transmission Date: 20191005
  Serious: Yes (Other)
  Sender: FDA-Public Use
  Company Number: None

PATIENT
  Age: 94 Year
  Sex: Male
  Weight: 58.97 kg

DRUGS (1)
  1. FRICCILICONT [Suspect]
     Active Substance: MENTHOL\METHYL SALICYLATE
     Indication: PAIN
     Dosage: 10 OZ BOTTLE;OTHER FREQUENCY:2 - 3 TIMES A DAY ON SKIN?
     Route: 061
     Dates: start: 20190610, end: 20190611

REACTIONS (4)
  - Rash [None]
  - Erythema [None]
  - Swelling [None]
  - Skin irritation [None]

NARRATIVE: CASE EVENT DATE: 20190617
